FAERS Safety Report 13914199 (Version 1)
Quarter: 2017Q3

REPORT INFORMATION
  Report Type: Spontaneous
  Country: US (occurrence: US)
  Receive Date: 20170828
  Receipt Date: 20170828
  Transmission Date: 20171127
  Serious: No
  Sender: FDA-Public Use
  Company Number: US-ROCHE-1130388

PATIENT
  Age: 16 Year
  Sex: Male
  Weight: 37 kg

DRUGS (1)
  1. NUTROPIN [Suspect]
     Active Substance: SOMATROPIN
     Indication: GROWTH HORMONE DEFICIENCY
     Dosage: 0.30 MG/KG/WK
     Route: 058
     Dates: start: 199008

REACTIONS (1)
  - Rib deformity [Unknown]

NARRATIVE: CASE EVENT DATE: 20000519
